FAERS Safety Report 8200777-3 (Version None)
Quarter: 2012Q1

REPORT INFORMATION
  Report Type: 
  Country: None (occurrence: None)
  Receive Date: 20120312
  Receipt Date: 20120302
  Transmission Date: 20120608
  Serious: Yes (Hospitalization, Other)
  Sender: FDA-Public Use
  Company Number: BR-SANOFI-AVENTIS-2012SA014720

PATIENT
  Age: 71 Year
  Sex: Male
  Weight: 62 kg

DRUGS (10)
  1. CEWIN [Concomitant]
     Indication: VITAMIN C
     Route: 048
     Dates: start: 20090101
  2. CARVEDILOL [Concomitant]
     Route: 048
     Dates: start: 20100101
  3. PANTOPRAZOLE [Concomitant]
     Indication: GASTRIC DISORDER
     Route: 048
     Dates: start: 20020101
  4. SOLOSTAR [Suspect]
     Indication: DEVICE THERAPY
     Dates: start: 20090501
  5. HYDRALAZINE HCL [Concomitant]
     Indication: BLOOD PRESSURE
     Route: 048
     Dates: start: 20070101
  6. LANTUS [Suspect]
     Indication: TYPE 2 DIABETES MELLITUS
     Dosage: DOSE: ACCORDING TO GLYCEMIA
     Route: 058
     Dates: start: 20090501
  7. LASIX [Concomitant]
     Indication: MICTURITION DISORDER
     Route: 048
     Dates: start: 20020101
  8. ISOSORBIDE MONONITRATE [Concomitant]
     Route: 048
     Dates: start: 20100101
  9. PROCRIT [Concomitant]
     Indication: ANAEMIA
     Dosage: 4.000 ON VE A WEEK
     Route: 048
     Dates: start: 20070101
  10. CLONIDINE HYDROCHLORIDE [Concomitant]
     Indication: BLOOD PRESSURE
     Route: 048
     Dates: start: 20070101

REACTIONS (10)
  - DYSPNOEA [None]
  - VISUAL ACUITY REDUCED [None]
  - HYPOGLYCAEMIA [None]
  - CATARACT [None]
  - DIZZINESS [None]
  - VISUAL IMPAIRMENT [None]
  - FEELING ABNORMAL [None]
  - PULMONARY OEDEMA [None]
  - RENAL FAILURE CHRONIC [None]
  - ASTIGMATISM [None]
